FAERS Safety Report 15651571 (Version 1)
Quarter: 2018Q4

REPORT INFORMATION
  Report Type: Spontaneous
  Country: SE (occurrence: SE)
  Receive Date: 20181123
  Receipt Date: 20181123
  Transmission Date: 20190205
  Serious: Yes (Hospitalization)
  Sender: FDA-Public Use
  Company Number: SE-PURDUE-GBR-2018-0061801

PATIENT
  Age: 77 Year
  Sex: Male

DRUGS (13)
  1. LOSARTAN. [Concomitant]
     Active Substance: LOSARTAN
  2. BETAPRED [Concomitant]
     Active Substance: BETAMETHASONE SODIUM PHOSPHATE
  3. LYRICA [Concomitant]
     Active Substance: PREGABALIN
  4. CLOPIDOGREL [Concomitant]
     Active Substance: CLOPIDOGREL BISULFATE
  5. ACETYLCYSTEIN [Concomitant]
     Active Substance: ACETYLCYSTEINE
  6. LEVAXIN [Concomitant]
     Active Substance: LEVOTHYROXINE SODIUM
  7. OXYCONTIN [Suspect]
     Active Substance: OXYCODONE HYDROCHLORIDE
     Indication: OSTEOARTHRITIS
     Dosage: UNK
     Route: 065
  8. MIRTAZAPIN [Concomitant]
     Active Substance: MIRTAZAPINE
  9. ALVEDON [Concomitant]
     Active Substance: ACETAMINOPHEN
  10. LAXIDO [Concomitant]
     Active Substance: POLYETHYLENE GLYCOL 3350\POTASSIUM CHLORIDE\SODIUM BICARBONATE\SODIUM CHLORIDE
  11. ALFUZOSIN [Concomitant]
     Active Substance: ALFUZOSIN
  12. LAKTULOS [Concomitant]
  13. LOSARSTAD [Concomitant]

REACTIONS (2)
  - Acute respiratory failure [Recovered/Resolved]
  - Hypoxia [Recovered/Resolved]

NARRATIVE: CASE EVENT DATE: 20180419
